FAERS Safety Report 5138294-X (Version None)
Quarter: 2006Q4

REPORT INFORMATION
  Report Type: 
  Country: None (occurrence: None)
  Receive Date: 20061030
  Receipt Date: 20060815
  Transmission Date: 20070319
  Serious: No
  Sender: FDA-Public Use
  Company Number: US-GLAXOSMITHKLINE-A0616746A

PATIENT
  Age: 72 Year
  Sex: Male

DRUGS (5)
  1. ADVAIR HFA [Suspect]
     Indication: ASTHMA
     Route: 055
     Dates: start: 20000101
  2. LIPITOR [Concomitant]
  3. LISINOPRIL [Concomitant]
  4. LEVOXYL [Concomitant]
  5. ALBUTEROL [Concomitant]

REACTIONS (1)
  - ARTHRALGIA [None]
